FAERS Safety Report 7278997-4 (Version None)
Quarter: 2011Q1

REPORT INFORMATION
  Report Type: 
  Country: None (occurrence: None)
  Receive Date: 20110207
  Receipt Date: 20110125
  Transmission Date: 20110831
  Serious: Yes (Other)
  Sender: FDA-Public Use
  Company Number: IT-TYCO HEALTHCARE/MALLINCKRODT-T201100278

PATIENT
  Sex: Female

DRUGS (2)
  1. EXALGO [Suspect]
     Indication: PRODUCT USED FOR UNKNOWN INDICATION
     Dosage: 4 MG, UNK
     Route: 048
  2. EXALGO [Suspect]
     Dosage: 4 MG, TWICE
     Route: 048

REACTIONS (1)
  - ANAPHYLACTIC SHOCK [None]
